FAERS Safety Report 8471360-X (Version None)
Quarter: 2012Q2

REPORT INFORMATION
  Report Type: 
  Country: None (occurrence: None)
  Receive Date: 20120627
  Receipt Date: 20120625
  Transmission Date: 20120825
  Serious: No
  Sender: FDA-Public Use
  Company Number: US-BAYER-2012-063218

PATIENT
  Age: 77 Year
  Sex: Female
  Weight: 54.875 kg

DRUGS (4)
  1. BETASERON [Suspect]
     Indication: MULTIPLE SCLEROSIS
     Dosage: UNK UNK, QOD
     Dates: start: 20120523, end: 20120529
  2. PEPCID [Concomitant]
  3. ATIVAN [Concomitant]
  4. ZOLOFT [Concomitant]

REACTIONS (1)
  - HEPATIC ENZYME INCREASED [None]
